FAERS Safety Report 12519488 (Version 1)
Quarter: 2016Q2

REPORT INFORMATION
  Report Type: Spontaneous
  Country: NO (occurrence: NO)
  Receive Date: 20160630
  Receipt Date: 20160630
  Transmission Date: 20160815
  Serious: Yes (Hospitalization)
  Sender: FDA-Public Use
  Company Number: NO-009507513-1606NOR013209

PATIENT
  Age: 54 Year
  Sex: Female

DRUGS (5)
  1. PARACET [Concomitant]
     Active Substance: ACETAMINOPHEN
     Dosage: 500 MG, UNK
  2. ACTIVELLE [Concomitant]
     Active Substance: ESTRADIOL\NORETHINDRONE ACETATE
     Dosage: 1 DF, QD
  3. LITHIONIT [Concomitant]
     Active Substance: LITHIUM SULFATE
     Dosage: 83MG MORNING AND 42MG EVENING
  4. REMERON [Suspect]
     Active Substance: MIRTAZAPINE
     Dosage: 30 MG, QD
  5. IMOVANE [Concomitant]
     Active Substance: ZOPICLONE
     Dosage: 7.5 MG, UNK

REACTIONS (4)
  - Intentional overdose [Recovered/Resolved]
  - Incoherent [Recovered/Resolved]
  - Hallucination [Recovered/Resolved]
  - Confusional state [Recovered/Resolved]

NARRATIVE: CASE EVENT DATE: 20160611
